FAERS Safety Report 4366999-7 (Version None)
Quarter: 2004Q2

REPORT INFORMATION
  Report Type: 
  Country: None (occurrence: None)
  Receive Date: 20040527
  Receipt Date: 20040527
  Transmission Date: 20050107
  Serious: Yes (Other)
  Sender: FDA-Public Use
  Company Number: None

PATIENT
  Age: 50 Year
  Sex: Female
  Weight: 58.514 kg

DRUGS (2)
  1. LIPITOR [Suspect]
     Indication: BLOOD CHOLESTEROL INCREASED
     Dosage: 40 MG 2X DAILY ORAL
     Route: 048
     Dates: start: 19870505, end: 20030505
  2. ZOCOR [Suspect]
     Indication: BLOOD CHOLESTEROL INCREASED
     Dosage: 40 MG 2XDAILY ORAL
     Route: 048
     Dates: start: 20020505, end: 20040117

REACTIONS (4)
  - AMNESIA [None]
  - DIZZINESS [None]
  - EARLY RETIREMENT [None]
  - IMPAIRED WORK ABILITY [None]
